FAERS Safety Report 8390277-2 (Version None)
Quarter: 2012Q2

REPORT INFORMATION
  Report Type: 
  Country: None (occurrence: None)
  Receive Date: 20120529
  Receipt Date: 20120517
  Transmission Date: 20120825
  Serious: Yes (Hospitalization)
  Sender: FDA-Public Use
  Company Number: CA-JNJFOC-20120502155

PATIENT
  Age: 67 Year
  Sex: Male

DRUGS (1)
  1. ZYTIGA [Suspect]
     Indication: ILL-DEFINED DISORDER
     Route: 048
     Dates: start: 20111201

REACTIONS (3)
  - CEREBRAL HAEMORRHAGE [None]
  - CLOSTRIDIAL INFECTION [None]
  - PNEUMONIA [None]
